FAERS Safety Report 7305815-8 (Version None)
Quarter: 2011Q1

REPORT INFORMATION
  Report Type: 
  Country: None (occurrence: None)
  Receive Date: 20110222
  Receipt Date: 20110211
  Transmission Date: 20110831
  Serious: Yes (Hospitalization)
  Sender: FDA-Public Use
  Company Number: DE-ROCHE-754372

PATIENT
  Sex: Female
  Weight: 82 kg

DRUGS (5)
  1. BEVACIZUMAB [Suspect]
     Dosage: 3 CYCLES
     Route: 042
     Dates: start: 20101022, end: 20101210
  2. DOCETAXEL [Suspect]
     Dosage: 3 CYCLES
     Route: 042
     Dates: start: 20101022, end: 20101210
  3. DEXAMETHASONE [Concomitant]
  4. RAMIPRIL [Concomitant]
     Indication: HYPERTENSION
     Route: 048
  5. ZOFRON [Concomitant]

REACTIONS (2)
  - CELLULITIS [None]
  - ABSCESS [None]
